FAERS Safety Report 8399445-7 (Version None)
Quarter: 2012Q2

REPORT INFORMATION
  Report Type: 
  Country: None (occurrence: None)
  Receive Date: 20120323
  Receipt Date: 20110816
  Transmission Date: 20120825
  Serious: Yes (Disabling)
  Sender: FDA-Public Use
  Company Number: 163-21880-11012455

PATIENT
  Sex: Female

DRUGS (5)
  1. LEVOTHYROXINE SODIUM [Concomitant]
  2. NIFEDICAL (NIFEDIPINE) [Concomitant]
  3. REVLIMID [Suspect]
     Indication: LYMPHOMA
     Dosage: 25 MG, DAILY, PO ; 10 MG, 1 IN 1 D, PO
     Route: 048
     Dates: start: 20101101
  4. REVLIMID [Suspect]
     Indication: LYMPHOMA
     Dosage: 25 MG, DAILY, PO ; 10 MG, 1 IN 1 D, PO
     Route: 048
     Dates: start: 20110119
  5. DEXAMETHASONE [Concomitant]

REACTIONS (2)
  - CONDITION AGGRAVATED [None]
  - NEUROPATHY PERIPHERAL [None]
